FAERS Safety Report 23517258 (Version 3)
Quarter: 2024Q2

REPORT INFORMATION
  Report Type: Report from Study
  Country: MX (occurrence: MX)
  Receive Date: 20240213
  Receipt Date: 20240615
  Transmission Date: 20240715
  Serious: Yes (Hospitalization, Other)
  Sender: FDA-Public Use
  Company Number: MX-002147023-NVSC2024MX029336

PATIENT
  Age: 52 Year
  Sex: Female
  Weight: 115 kg

DRUGS (1)
  1. GILENYA [Suspect]
     Active Substance: FINGOLIMOD HYDROCHLORIDE
     Indication: Multiple sclerosis
     Dosage: 0.5 MG, QD
     Route: 048
     Dates: start: 20231101

REACTIONS (9)
  - Abscess [Unknown]
  - Multiple sclerosis relapse [Recovering/Resolving]
  - Urinary retention [Not Recovered/Not Resolved]
  - Blindness [Recovering/Resolving]
  - Oral pain [Unknown]
  - Vision blurred [Unknown]
  - Influenza [Unknown]
  - Herpes virus infection [Unknown]
  - Weight decreased [Unknown]

NARRATIVE: CASE EVENT DATE: 20231101
